FAERS Safety Report 23100967 (Version 1)
Quarter: 2023Q4

REPORT INFORMATION
  Report Type: Spontaneous
  Country: DE (occurrence: DE)
  Receive Date: 20231024
  Receipt Date: 20231024
  Transmission Date: 20240110
  Serious: Yes (Life-Threatening, Hospitalization, Other)
  Sender: FDA-Public Use
  Company Number: DE-BoehringerIngelheim-2023-BI-268448

PATIENT
  Age: 49 Year
  Sex: Female
  Weight: 100 kg

DRUGS (42)
  1. CLONIDINE [Suspect]
     Active Substance: CLONIDINE
     Indication: Hypertension
  2. IBUPROFEN [Suspect]
     Active Substance: IBUPROFEN
     Indication: Product used for unknown indication
  3. PIRITRAMIDE [Suspect]
     Active Substance: PIRITRAMIDE
     Indication: Pain in extremity
     Dates: start: 20150608
  4. PIRITRAMIDE [Suspect]
     Active Substance: PIRITRAMIDE
     Indication: Back pain
  5. DOXORUBICIN [Suspect]
     Active Substance: DOXORUBICIN
     Indication: Hodgkin^s disease
  6. CYCLOPHOSPHAMIDE [Suspect]
     Active Substance: CYCLOPHOSPHAMIDE
     Indication: Hodgkin^s disease
     Dates: start: 20160113
  7. BLEOMYCIN [Suspect]
     Active Substance: BLEOMYCIN SULFATE
     Indication: Hodgkin^s disease
     Dates: start: 20151027, end: 201512
  8. BLEOMYCIN [Suspect]
     Active Substance: BLEOMYCIN SULFATE
     Dates: start: 20160120
  9. BACLOFEN [Suspect]
     Active Substance: BACLOFEN
     Indication: Product used for unknown indication
  10. HYDROCHLOROTHIAZIDE\VALSARTAN [Suspect]
     Active Substance: HYDROCHLOROTHIAZIDE\VALSARTAN
     Indication: Hypertension
     Dates: start: 20150102
  11. ETOPOSIDE [Suspect]
     Active Substance: ETOPOSIDE
     Indication: Hodgkin^s disease
     Dates: start: 20160113
  12. DICLOFENAC [Suspect]
     Active Substance: DICLOFENAC
     Indication: Product used for unknown indication
  13. LENOGRASTIM [Suspect]
     Active Substance: LENOGRASTIM
     Indication: Neutropenia
     Dates: start: 201511, end: 201511
  14. LENOGRASTIM [Suspect]
     Active Substance: LENOGRASTIM
     Dates: start: 20160203, end: 20160205
  15. ASPIRIN [Suspect]
     Active Substance: ASPIRIN
     Indication: Product used for unknown indication
  16. VINCRISTINE [Suspect]
     Active Substance: VINCRISTINE
     Indication: Hodgkin^s disease
     Dates: start: 20150120
  17. ACETAMINOPHEN [Suspect]
     Active Substance: ACETAMINOPHEN
     Indication: Product used for unknown indication
  18. VALSARTAN [Suspect]
     Active Substance: VALSARTAN
     Indication: Hypertension
     Dates: start: 2008
  19. NEULASTA [Suspect]
     Active Substance: PEGFILGRASTIM
     Indication: Neutropenia
     Dates: start: 20151212, end: 20151212
  20. DIAZEPAM [Suspect]
     Active Substance: DIAZEPAM
     Indication: Back pain
     Dates: start: 20150608
  21. DIAZEPAM [Suspect]
     Active Substance: DIAZEPAM
     Indication: Pain in extremity
  22. PREDNISOLONE [Suspect]
     Active Substance: PREDNISOLONE
     Indication: Hodgkin^s disease
     Dates: start: 20160113, end: 20160116
  23. DACARBAZINE [Suspect]
     Active Substance: DACARBAZINE
     Indication: Hodgkin^s disease
     Dates: start: 20151027, end: 201512
  24. VALSARTAN [Suspect]
     Active Substance: VALSARTAN
     Indication: Hypertension
     Dates: start: 201407, end: 201410
  25. VINBLASTINE [Suspect]
     Active Substance: VINBLASTINE
     Indication: Hodgkin^s disease
     Dates: start: 20151027, end: 201512
  26. PROCARBAZINE [Suspect]
     Active Substance: PROCARBAZINE
     Indication: Hodgkin^s disease
     Dates: start: 20190113, end: 20190119
  27. HYDROCHLOROTHIAZIDE\VALSARTAN [Concomitant]
     Active Substance: HYDROCHLOROTHIAZIDE\VALSARTAN
     Indication: Hypertension
     Dates: start: 20170725
  28. ENOXAPARIN SODIUM [Concomitant]
     Active Substance: ENOXAPARIN SODIUM
     Indication: Thrombosis prophylaxis
  29. MOTILIUM [Concomitant]
     Active Substance: DOMPERIDONE
     Indication: Product used for unknown indication
  30. CITALOPRAM [Concomitant]
     Active Substance: CITALOPRAM HYDROBROMIDE
     Indication: Product used for unknown indication
  31. LEVOTHYROXINE [Concomitant]
     Active Substance: LEVOTHYROXINE
     Indication: Product used for unknown indication
  32. LYRICA [Concomitant]
     Active Substance: PREGABALIN
  33. VALSARTAN [Concomitant]
     Active Substance: VALSARTAN
     Indication: Hypertension
  34. MORPHINE [Concomitant]
     Active Substance: MORPHINE
     Indication: Pain
  35. CHOLECALCIFEROL [Concomitant]
     Active Substance: CHOLECALCIFEROL
     Indication: Product used for unknown indication
  36. SULFAMETHOXAZOLE\TRIMETHOPRIM [Concomitant]
     Active Substance: SULFAMETHOXAZOLE\TRIMETHOPRIM
     Indication: Pneumonia
     Dosage: 2 DF DAILY
  37. BACLOFEN [Concomitant]
     Active Substance: BACLOFEN
     Indication: Product used for unknown indication
     Dates: start: 2015, end: 2015
  38. HYDROMORPHONE [Concomitant]
     Active Substance: HYDROMORPHONE
     Indication: Product used for unknown indication
  39. PANTOZOL [Concomitant]
     Active Substance: PANTOPRAZOLE SODIUM
     Indication: Product used for unknown indication
  40. CLORAZEPATE DIPOTASSIUM [Concomitant]
     Active Substance: CLORAZEPATE DIPOTASSIUM
     Indication: Product used for unknown indication
  41. MOVICOL [Concomitant]
     Active Substance: POLYETHYLENE GLYCOL 3350\POTASSIUM CHLORIDE\SODIUM BICARBONATE\SODIUM CHLORIDE
     Indication: Product used for unknown indication
     Dosage: 1 DF
  42. SULFAMETHOXAZOLE\TRIMETHOPRIM [Concomitant]
     Active Substance: SULFAMETHOXAZOLE\TRIMETHOPRIM
     Indication: Product used for unknown indication

REACTIONS (73)
  - Back pain [Unknown]
  - Hypokinesia [Not Recovered/Not Resolved]
  - Somnolence [Recovering/Resolving]
  - Anaphylactic reaction [Unknown]
  - Pain in extremity [Recovering/Resolving]
  - Muscle spasticity [Unknown]
  - Spinal pain [Unknown]
  - Hodgkin^s disease [Unknown]
  - Red blood cell sedimentation rate increased [Unknown]
  - Splenomegaly [Unknown]
  - Neoplasm malignant [Unknown]
  - Urinary tract infection [Unknown]
  - Lymphadenopathy [Recovering/Resolving]
  - General physical health deterioration [Unknown]
  - Pain [Recovering/Resolving]
  - Dyspnoea [Recovering/Resolving]
  - Hyperpyrexia [Unknown]
  - Cough [Unknown]
  - Pneumonia [Unknown]
  - Neutropenia [Recovering/Resolving]
  - Vomiting [Recovering/Resolving]
  - Nausea [Recovering/Resolving]
  - Pyrexia [Unknown]
  - Headache [Unknown]
  - Viral infection [Unknown]
  - Tissue infiltration [Unknown]
  - Device malfunction [Unknown]
  - Psychogenic seizure [Unknown]
  - Loss of consciousness [Unknown]
  - Respiratory failure [Unknown]
  - Fall [Unknown]
  - Monoplegia [Unknown]
  - Fatigue [Unknown]
  - Inflammation [Recovering/Resolving]
  - Tremor [Unknown]
  - Pyrexia [Recovered/Resolved]
  - Tenderness [Unknown]
  - Speech disorder [Unknown]
  - Neurological decompensation [Recovering/Resolving]
  - Hypothyroidism [Unknown]
  - Bone pain [Unknown]
  - Pulmonary congestion [Unknown]
  - Klebsiella infection [Unknown]
  - Anaesthesia [Recovering/Resolving]
  - Candida infection [Unknown]
  - Intervertebral disc disorder [Unknown]
  - Dysphagia [Unknown]
  - Basal ganglion degeneration [Unknown]
  - Sepsis [Unknown]
  - Fatigue [Unknown]
  - Haematoma [Unknown]
  - Fall [Unknown]
  - Hyperventilation [Unknown]
  - Hypochromic anaemia [Unknown]
  - Drug hypersensitivity [Unknown]
  - Arthralgia [Unknown]
  - Myalgia [Unknown]
  - Sleep apnoea syndrome [Unknown]
  - Lung disorder [Unknown]
  - Sleep disorder [Unknown]
  - Inguinal hernia [Unknown]
  - Hyperhidrosis [Unknown]
  - Dysaesthesia [Recovering/Resolving]
  - Renal cyst [Unknown]
  - Uterine enlargement [Unknown]
  - Obesity [Unknown]
  - Tachycardia [Unknown]
  - Dizziness [Unknown]
  - Hepatic steatosis [Unknown]
  - Hypoaesthesia [Recovering/Resolving]
  - Emotional distress [Unknown]
  - Fear [Unknown]
  - Abdominal tenderness [Unknown]

NARRATIVE: CASE EVENT DATE: 20140101
